FAERS Safety Report 9934592 (Version 1)
Quarter: 2014Q1

REPORT INFORMATION
  Report Type: Spontaneous
  Country: US (occurrence: US)
  Receive Date: 20140228
  Receipt Date: 20140228
  Transmission Date: 20141002
  Serious: Yes (Life-Threatening, Hospitalization)
  Sender: FDA-Public Use
  Company Number: US-BRISTOL-MYERS SQUIBB COMPANY-20241584

PATIENT
  Age: 13 Year
  Sex: Male

DRUGS (1)
  1. ABILIFY [Suspect]

REACTIONS (8)
  - Respiratory distress [Recovered/Resolved]
  - Eye inflammation [Unknown]
  - Rash [Unknown]
  - Neuralgia [Unknown]
  - Lethargy [Unknown]
  - Dystonia [Unknown]
  - Lip disorder [Unknown]
  - Blood glucose increased [Unknown]
